FAERS Safety Report 11149410 (Version 1)
Quarter: 2015Q2

REPORT INFORMATION
  Report Type: Spontaneous
  Country: US (occurrence: US)
  Receive Date: 20150529
  Receipt Date: 20150529
  Transmission Date: 20150821
  Serious: Yes (Hospitalization, Other)
  Sender: FDA-Public Use
  Company Number: US-TEVA-564573USA

PATIENT
  Age: 61 Year
  Sex: Male

DRUGS (11)
  1. CLONIDINE. [Suspect]
     Active Substance: CLONIDINE
     Indication: HYPERTENSION
     Dosage: .02 X 5
     Route: 065
     Dates: start: 2004
  2. RAPAMUNE [Suspect]
     Active Substance: SIROLIMUS
     Indication: IMMUNOSUPPRESSION
     Dosage: 1-2 MG DAILY
     Route: 065
     Dates: start: 20120612
  3. ALPRAZOLAM. [Suspect]
     Active Substance: ALPRAZOLAM
     Route: 065
     Dates: start: 2008
  4. COUMADIN [Suspect]
     Active Substance: WARFARIN SODIUM
     Indication: DEEP VEIN THROMBOSIS
     Dosage: 5 MILLIGRAM DAILY;
     Route: 065
  5. HYDRALAZINE [Suspect]
     Active Substance: HYDRALAZINE HYDROCHLORIDE
     Indication: HYPERTENSION
     Dosage: X 3
     Route: 065
  6. ALLOPURINOL. [Suspect]
     Active Substance: ALLOPURINOL
     Indication: GOUT
     Dosage: X1
     Dates: start: 2009
  7. SULFACETAMIDE [Suspect]
     Active Substance: SULFACETAMIDE
     Dates: start: 20140314
  8. ALLOPURINOL. [Suspect]
     Active Substance: ALLOPURINOL
     Indication: RENAL DISORDER
  9. KETOCONAZOLE. [Concomitant]
     Active Substance: KETOCONAZOLE
     Dates: start: 20140314
  10. LABETALOL [Suspect]
     Active Substance: LABETALOL\LABETALOL HYDROCHLORIDE
     Indication: HYPERTENSION
     Dosage: X3
     Route: 065
     Dates: start: 2004
  11. PREDNISONE. [Suspect]
     Active Substance: PREDNISONE
     Indication: GOUT
     Route: 065
     Dates: start: 2008

REACTIONS (4)
  - Neutropenia [Recovered/Resolved]
  - Deep vein thrombosis [Not Recovered/Not Resolved]
  - Liver transplant [Recovered/Resolved]
  - Lymphoma [Unknown]

NARRATIVE: CASE EVENT DATE: 2014
